FAERS Safety Report 8355195 (Version 2)
Quarter: 2013Q4

REPORT INFORMATION
  Report Type: Spontaneous
  Country: US (occurrence: US)
  Receive Date: 20120126
  Receipt Date: 20131220
  Transmission Date: 20140711
  Serious: Yes (Other)
  Sender: FDA-Public Use
  Company Number: US-BAYER-2012-006345

PATIENT
  Age: 30 Year
  Sex: Female

DRUGS (7)
  1. YAZ [Suspect]
     Dosage: UNK
     Dates: start: 200904
  2. ZOLOFT [Concomitant]
     Indication: DEPRESSION
     Dosage: UNK
  3. ZOLOFT [Concomitant]
     Indication: ANXIETY
  4. TOPAMAX [Concomitant]
     Dosage: UNK
  5. ZYRTEC [Concomitant]
     Dosage: UNK
  6. MULTIVITAMINS [Concomitant]
     Dosage: UNK
  7. VICODIN [Concomitant]
     Indication: PAIN
     Dosage: 1 TO 2 TABLETS EVERY 4 HOURS, PRN

REACTIONS (5)
  - Cholecystitis chronic [None]
  - Cholecystectomy [None]
  - Injury [None]
  - Pain [None]
  - Emotional distress [None]
